FAERS Safety Report 10552508 (Version 2)
Quarter: 2014Q4

REPORT INFORMATION
  Report Type: Spontaneous
  Country: DE (occurrence: DE)
  Receive Date: 20141029
  Receipt Date: 20141105
  Transmission Date: 20150529
  Serious: Yes (Disabling, Congenital Anomaly, Other)
  Sender: FDA-Public Use
  Company Number: DE-TEVA-518141USA

PATIENT
  Sex: Female

DRUGS (3)
  1. GALZIN [Suspect]
     Active Substance: ZINC ACETATE
     Indication: HEPATO-LENTICULAR DEGENERATION
     Route: 048
  2. D-PENICILLAMINE [Suspect]
     Active Substance: PENICILLAMINE
     Indication: HEPATO-LENTICULAR DEGENERATION
     Route: 065
  3. TRIENTINE [Suspect]
     Active Substance: TRIENTINE
     Indication: HEPATO-LENTICULAR DEGENERATION
     Route: 065

REACTIONS (4)
  - Neurological decompensation [Unknown]
  - Glucose-6-phosphate dehydrogenase deficiency [Unknown]
  - Abortion [Unknown]
  - Hepatic function abnormal [Recovered/Resolved]
